FAERS Safety Report 12900931 (Version 1)
Quarter: 2016Q4

REPORT INFORMATION
  Report Type: Spontaneous
  Country: US (occurrence: US)
  Receive Date: 20161101
  Receipt Date: 20161101
  Transmission Date: 20170207
  Serious: No
  Sender: FDA-Public Use
  Company Number: US-BAYER-2016-207151

PATIENT
  Age: 82 Year
  Sex: Female

DRUGS (2)
  1. GADAVIST [Suspect]
     Active Substance: GADOBUTROL
     Indication: INFECTION
     Dosage: 15 ML, ONCE
     Dates: start: 20161025, end: 20161025
  2. GADAVIST [Suspect]
     Active Substance: GADOBUTROL
     Indication: LYMPHOEDEMA

REACTIONS (2)
  - Product use issue [None]
  - Tremor [Recovered/Resolved]

NARRATIVE: CASE EVENT DATE: 20161025
